FAERS Safety Report 17877714 (Version 1)
Quarter: 2020Q2

REPORT INFORMATION
  Report Type: Report from Study
  Country: GB (occurrence: GB)
  Receive Date: 20200609
  Receipt Date: 20200609
  Transmission Date: 20200714
  Serious: Yes (Other)
  Sender: FDA-Public Use
  Company Number: NVSC2019GB009205

PATIENT
  Sex: Female

DRUGS (2)
  1. SANDOSTATIN LAR DEPOT [Suspect]
     Active Substance: OCTREOTIDE ACETATE
     Indication: CUSHING^S SYNDROME
     Dosage: 20 MG EVERY 6 WEEKS
     Route: 030
  2. SANDOSTATIN LAR DEPOT [Suspect]
     Active Substance: OCTREOTIDE ACETATE
     Dosage: 20 MG, QMO
     Route: 030

REACTIONS (7)
  - Lower respiratory tract infection [Unknown]
  - Dyspnoea [Unknown]
  - Urticaria [Recovered/Resolved]
  - Sleep disorder [Unknown]
  - Back pain [Recovering/Resolving]
  - Product use in unapproved indication [Unknown]
  - Cortisol increased [Unknown]

NARRATIVE: CASE EVENT DATE: 20190925
